FAERS Safety Report 21356915 (Version 4)
Quarter: 2022Q4

REPORT INFORMATION
  Report Type: Spontaneous
  Country: IT (occurrence: IT)
  Receive Date: 20220920
  Receipt Date: 20221130
  Transmission Date: 20230112
  Serious: Yes (Hospitalization, Disabling, Other)
  Sender: FDA-Public Use
  Company Number: IT-CELLTRION INC.-2022IT014989

PATIENT

DRUGS (23)
  1. TRASTUZUMAB [Suspect]
     Active Substance: TRASTUZUMAB
     Indication: Extramammary Paget^s disease
     Dosage: 8 MG/KG (LOADING DOSE)
     Route: 042
     Dates: start: 201601
  2. TRASTUZUMAB [Suspect]
     Active Substance: TRASTUZUMAB
     Dosage: 6 MG/KG (MAINTENANCE DOSE EVERY 3 WEEKS; CONTINUED AS MAINTENANCE TREATMENT FOR 32 MONTHS)/6 MG/KG M
     Route: 042
     Dates: end: 201910
  3. TRASTUZUMAB [Suspect]
     Active Substance: TRASTUZUMAB
     Dosage: 8 MG/KG (LOADING DOSE)
     Route: 042
  4. TRASTUZUMAB [Suspect]
     Active Substance: TRASTUZUMAB
     Dosage: 6 MG/KG EVERY 3 WEEKS MAINTENANCE DOSE
     Route: 042
  5. BICALUTAMIDE [Suspect]
     Active Substance: BICALUTAMIDE
     Indication: Extramammary Paget^s disease
     Dosage: 50 MILLIGRAM, DAILY/FOURTH-LINE TREATMENT
     Route: 048
     Dates: start: 201906, end: 201908
  6. BICALUTAMIDE [Suspect]
     Active Substance: BICALUTAMIDE
     Dosage: UNK
  7. BICALUTAMIDE [Suspect]
     Active Substance: BICALUTAMIDE
     Dosage: 50 MG QD
     Route: 048
  8. CAPECITABINE [Suspect]
     Active Substance: CAPECITABINE
     Indication: Extramammary Paget^s disease
     Dosage: UNK
  9. CAPECITABINE [Suspect]
     Active Substance: CAPECITABINE
     Dosage: 1500 MG, QD METRONOMIC
     Dates: start: 201512
  10. GEMCITABINE [Suspect]
     Active Substance: GEMCITABINE
     Indication: Extramammary Paget^s disease
     Dosage: 800 MILLIGRAM DAY 1, DAY 8 EVERY 3 WEEKS/FIFTH-LINE TREATMENT, DAY 1
     Dates: start: 201908
  11. GEMCITABINE [Suspect]
     Active Substance: GEMCITABINE
     Dosage: 800 MILLIGRAM, DAY 1, DAY 8, 3 WEEK/FIFTH-LINE TREATMENT, DAY 8
     Route: 048
     Dates: start: 201910
  12. GEMCITABINE [Suspect]
     Active Substance: GEMCITABINE
     Dosage: 800 MG EVERY 3 WEEKS, DAY 1, DAY 8
  13. VINORELBINE [Suspect]
     Active Substance: VINORELBINE TARTRATE
     Indication: Extramammary Paget^s disease
     Dosage: 50 MILLIGRAM, (AS GIVEN ON MONDAY, WEDNESDAY, AND FRIDAY EVERY WEEK)/ EVERY 2.3 DAY THIRD-LINE METRO
     Route: 048
     Dates: start: 201808
  14. VINORELBINE [Suspect]
     Active Substance: VINORELBINE TARTRATE
     Dosage: 30 MILLIGRAM,(AS GIVEN ON MONDAY, WEDNESDAY, AND FRIDAY EVERY WEEK)/ EVERY 2.3 DAY REDUCED DOSE, MET
     Route: 048
     Dates: start: 201901, end: 201905
  15. VINORELBINE [Suspect]
     Active Substance: VINORELBINE TARTRATE
     Dosage: 30 MG, 0.33 WEEK, AS GIVEN ON MONDAY, WEDNESDAY, AND FRIDAY EVERY WEEK
     Dates: start: 201901
  16. VINORELBINE [Suspect]
     Active Substance: VINORELBINE TARTRATE
     Dosage: 30 MG, 1/WEEK AS GIVEN ON MONDAY, WEDNESDAY, AND FRIDAY EVERY WEEK
     Route: 048
     Dates: start: 201901
  17. VINORELBINE [Suspect]
     Active Substance: VINORELBINE TARTRATE
     Dosage: 50 MG, 1/WEEK AS GIVEN ON MONDAY, WEDNESDAY, AND FRIDAY EVERY WEEK
     Route: 048
  18. LEUPROLIDE ACETATE [Suspect]
     Active Substance: LEUPROLIDE ACETATE
     Indication: Extramammary Paget^s disease
     Dosage: 11.25 MILLIGRAM, EVERY 3 MONTHS/ FOURTH-LINE TREATMENT
     Route: 030
     Dates: start: 201906, end: 201908
  19. LEUPROLIDE ACETATE [Suspect]
     Active Substance: LEUPROLIDE ACETATE
     Dosage: 11.25 MG, EVERY 3 MONTHS
     Route: 030
     Dates: start: 201906
  20. ELIGARD [Suspect]
     Active Substance: LEUPROLIDE ACETATE
     Indication: Extramammary Paget^s disease
     Dosage: 11.25 MILLIGRAM, Q 3 MONTHS
     Dates: start: 201906
  21. PACLITAXEL [Concomitant]
     Active Substance: PACLITAXEL
     Indication: Extramammary Paget^s disease
     Dosage: 150 MG/MQ EVERY 3 WEEKS
     Dates: end: 201605
  22. PACLITAXEL [Concomitant]
     Active Substance: PACLITAXEL
     Dosage: 150 MG/M2, EVERY 3 WEEK
     Dates: start: 201601
  23. CARBOPLATIN [Concomitant]
     Active Substance: CARBOPLATIN
     Indication: Extramammary Paget^s disease
     Dosage: AREA UNDER THE CURVE (AUC) OF 5 EVERY 3 WEEKS
     Dates: start: 201601, end: 201605

REACTIONS (16)
  - Walking disability [Unknown]
  - Mobility decreased [Unknown]
  - Extramammary Paget^s disease [Unknown]
  - Depressed mood [Unknown]
  - Disease progression [Unknown]
  - Disease progression [Unknown]
  - Febrile neutropenia [Unknown]
  - Asthenia [Unknown]
  - Anaemia [Unknown]
  - Fatigue [Unknown]
  - Off label use [Recovered/Resolved]
  - Gait disturbance [Unknown]
  - Drug intolerance [Unknown]
  - Drug effective for unapproved indication [Unknown]
  - Drug ineffective for unapproved indication [Unknown]
  - Off label use [Unknown]

NARRATIVE: CASE EVENT DATE: 20151201
